FAERS Safety Report 8437017 (Version 3)
Quarter: 2012Q4

REPORT INFORMATION
  Report Type: 
  Country: US (occurrence: US)
  Receive Date: 20120302
  Receipt Date: 20121011
  Transmission Date: 20130627
  Serious: Yes (Hospitalization)
  Sender: FDA-Public Use
  Company Number: US-US-EMD SERONO, INC.-7115035

PATIENT
  Age: 65 None
  Sex: Female

DRUGS (12)
  1. REBIF [Suspect]
     Indication: RELAPSING-REMITTING MULTIPLE SCLEROSIS
     Route: 058
     Dates: start: 20081003, end: 201202
  2. NORVASC [Concomitant]
     Indication: ANGINA PECTORIS
  3. OXYBUTYNIN [Concomitant]
     Indication: BLADDER SPASM
  4. NITROSTAT [Concomitant]
     Indication: ANGINA PECTORIS
  5. PRILOSEC [Concomitant]
     Indication: PRODUCT USED FOR UNKNOWN INDICATION
  6. LISINOPRIL [Concomitant]
     Indication: HYPERTENSION
  7. LIPITOR [Concomitant]
     Indication: PRODUCT USED FOR UNKNOWN INDICATION
  8. LEXAPRO [Concomitant]
     Indication: DEPRESSION
  9. LASIX [Concomitant]
     Indication: PRODUCT USED FOR UNKNOWN INDICATION
  10. VITAMIN B [Concomitant]
     Indication: ROUTINE HEALTH MAINTENANCE
  11. CALCIUM [Concomitant]
     Indication: ROUTINE HEALTH MAINTENANCE
  12. IRON [Concomitant]
     Indication: ROUTINE HEALTH MAINTENANCE

REACTIONS (6)
  - Cardiac failure congestive [Recovering/Resolving]
  - Hypertension [Recovering/Resolving]
  - Pneumonia [Recovering/Resolving]
  - Bronchial hyperreactivity [Recovering/Resolving]
  - Blood iron decreased [Unknown]
  - Injection site nodule [Unknown]
